FAERS Safety Report 5144521-5 (Version None)
Quarter: 2006Q4

REPORT INFORMATION
  Report Type: 
  Country: None (occurrence: None)
  Receive Date: 20061031
  Receipt Date: 20061018
  Transmission Date: 20070319
  Serious: Yes (Hospitalization)
  Sender: FDA-Public Use
  Company Number: 2006127808

PATIENT

DRUGS (2)
  1. TOLTERODINE TARTRATE [Suspect]
     Dosage: ORAL
     Route: 048
  2. BUP-4 (PROPIVERINE HYDROCHLORIDE) [Concomitant]

REACTIONS (2)
  - LIVER FUNCTION TEST ABNORMAL [None]
  - WRONG DRUG ADMINISTERED [None]
